FAERS Safety Report 4809114-5 (Version None)
Quarter: 2005Q4

REPORT INFORMATION
  Report Type: 
  Country: None (occurrence: None)
  Receive Date: 20051024
  Receipt Date: 20051024
  Transmission Date: 20060501
  Serious: Yes (Life-Threatening)
  Sender: FDA-Public Use
  Company Number: None

PATIENT
  Sex: Male
  Weight: 113 kg

DRUGS (1)
  1. CEFTRIAXONE [Suspect]
     Indication: POSTOPERATIVE INFECTION
     Dosage: 2 G Q 24 IV
     Route: 042
     Dates: start: 20050903, end: 20050923

REACTIONS (1)
  - NEUTROPENIA [None]
